FAERS Safety Report 4588357-2 (Version None)
Quarter: 2005Q1

REPORT INFORMATION
  Report Type: 
  Country: None (occurrence: None)
  Receive Date: 20050222
  Receipt Date: 20050210
  Transmission Date: 20050727
  Serious: Yes (Death)
  Sender: FDA-Public Use
  Company Number: FR-JNJFOC-20050203102

PATIENT
  Age: 82 Year
  Sex: Female

DRUGS (5)
  1. REMINYL [Suspect]
     Route: 049
     Dates: start: 20010101
  2. REMINYL [Suspect]
     Route: 049
     Dates: start: 20010101
  3. REMINYL [Suspect]
     Route: 049
     Dates: start: 20010101
  4. EBIXA [Concomitant]
     Route: 065
  5. CELECTOL [Concomitant]
     Route: 065

REACTIONS (1)
  - CEREBRAL HAEMORRHAGE [None]
